FAERS Safety Report 6731913-3 (Version None)
Quarter: 2010Q2

REPORT INFORMATION
  Report Type: 
  Country: None (occurrence: None)
  Receive Date: 20100517
  Receipt Date: 20100510
  Transmission Date: 20101027
  Serious: Yes (Hospitalization, Other)
  Sender: FDA-Public Use
  Company Number: 2007JP005799

PATIENT
  Age: 22 Year
  Sex: Male
  Weight: 45.8 kg

DRUGS (12)
  1. PROGRAF [Suspect]
     Indication: SMALL INTESTINE TRANSPLANT
     Dosage: 4 MG, BID, ORAL
     Route: 048
     Dates: start: 20070301
  2. MEDROL [Suspect]
     Dosage: 8 MG, BID, ORAL
     Route: 048
     Dates: start: 20070409
  3. SULFAMETHOXAZOLE AND TRIMETHOPRIM [Suspect]
     Dosage: 0.5 G, TID, ORAL
     Route: 048
     Dates: start: 20070301
  4. VALIXA (VALGANCICLOVIR HYDROCHLORIDE) TABLET [Suspect]
     Indication: CYTOMEGALOVIRUS INFECTION
     Dosage: 1 DF, BID, ORAL
     Route: 048
     Dates: start: 20070627
  5. ANTI-IL-2 RECEPTOR ANTIBODY (ANTI-IL-2 RECEPTOR ANTIBODY) [Concomitant]
  6. FUNGIZONE [Concomitant]
  7. DIOVAN [Concomitant]
  8. MIYA-BM (CLOSTRIDIUM BUTYRICUM) [Concomitant]
  9. ENTERONON R (STREPTOCOCCUS FAECALIS, LACTOBACILLUS ACIDOPHILUS, STREPT [Concomitant]
  10. POLYMYXIN B SULFATE (POLYMYXIN B SULFATE) [Concomitant]
  11. MARZULENE S (LEVOGLUTAMIDE, SODIUM GUALENATE) [Concomitant]
  12. LANSOPRAZOLE [Concomitant]

REACTIONS (12)
  - COMPLICATIONS OF INTESTINAL TRANSPLANT [None]
  - CYTOMEGALOVIRUS ENTEROCOLITIS [None]
  - DEHYDRATION [None]
  - DEVICE RELATED INFECTION [None]
  - GASTROINTESTINAL NECROSIS [None]
  - GRAFT INFECTION [None]
  - HYPERCHLORAEMIA [None]
  - HYPERKALAEMIA [None]
  - INTESTINAL ULCER [None]
  - METABOLIC ACIDOSIS [None]
  - POLYURIA [None]
  - RENAL IMPAIRMENT [None]
